FAERS Safety Report 4729980-1 (Version None)
Quarter: 2005Q3

REPORT INFORMATION
  Report Type: 
  Country: None (occurrence: None)
  Receive Date: 20050729
  Receipt Date: 20050729
  Transmission Date: 20060218
  Serious: No
  Sender: FDA-Public Use
  Company Number: None

PATIENT
  Age: 74 Year
  Sex: Male
  Weight: 80 kg

DRUGS (2)
  1. GEMFIBROZIL [Suspect]
     Indication: BLOOD CHOLESTEROL
     Dosage: 600MG PO BID
     Route: 048
     Dates: start: 20020101, end: 20040801
  2. GEMFIBROZIL [Suspect]
     Indication: BLOOD TRIGLYCERIDES
     Dosage: 600MG PO BID
     Route: 048
     Dates: start: 20020101, end: 20040801

REACTIONS (2)
  - NAUSEA [None]
  - VOMITING [None]
